FAERS Safety Report 23569143 (Version 1)
Quarter: 2024Q1

REPORT INFORMATION
  Report Type: Spontaneous
  Country: DO (occurrence: DO)
  Receive Date: 20240227
  Receipt Date: 20240227
  Transmission Date: 20240410
  Serious: Yes (Other)
  Sender: FDA-Public Use
  Company Number: DO-009507513-2402DOM005062

PATIENT
  Age: 50 Year
  Sex: Male

DRUGS (1)
  1. KEYTRUDA [Suspect]
     Active Substance: PEMBROLIZUMAB
     Indication: Metastatic malignant melanoma
     Dosage: UNK

REACTIONS (5)
  - Malignant neoplasm progression [Unknown]
  - Neoplasm malignant [Unknown]
  - Retroperitoneal mass [Unknown]
  - Post procedural complication [Unknown]
  - Bone lesion [Unknown]
